FAERS Safety Report 18210096 (Version 1)
Quarter: 2020Q3

REPORT INFORMATION
  Report Type: Other
  Country: IS (occurrence: IS)
  Receive Date: 20200829
  Receipt Date: 20200829
  Transmission Date: 20201103
  Serious: Yes (Life-Threatening, Hospitalization)
  Sender: FDA-Public Use
  Company Number: IS-ASPIRO PHARMA LTD-2089175

PATIENT
  Age: 66 Year
  Sex: Female

DRUGS (3)
  1. FENTANYL. [Concomitant]
     Active Substance: FENTANYL
     Route: 065
  2. SUCCINYLCHOLINE CHLORIDE. [Suspect]
     Active Substance: SUCCINYLCHOLINE CHLORIDE
     Indication: ANAESTHESIA
     Route: 065
  3. PROPOFOL. [Concomitant]
     Active Substance: PROPOFOL
     Route: 065

REACTIONS (4)
  - Ventricular fibrillation [Recovered/Resolved]
  - Hyperkalaemia [Recovered/Resolved]
  - Ventricular tachycardia [Recovered/Resolved]
  - Cardiac arrest [Recovered/Resolved]
